FAERS Safety Report 13176631 (Version 3)
Quarter: 2017Q2

REPORT INFORMATION
  Report Type: Spontaneous
  Country: GB (occurrence: GB)
  Receive Date: 20170201
  Receipt Date: 20170514
  Transmission Date: 20170830
  Serious: Yes (Death, Hospitalization, Other)
  Sender: FDA-Public Use
  Company Number: GB-MYLANLABS-2017M1006068

PATIENT

DRUGS (1)
  1. CLOZARIL [Suspect]
     Active Substance: CLOZAPINE
     Indication: SCHIZOPHRENIA
     Dosage: UNK
     Route: 048
     Dates: start: 20060912

REACTIONS (6)
  - Terminal state [Unknown]
  - White blood cell count increased [Unknown]
  - Malignant neoplasm progression [Fatal]
  - Metastasis [Fatal]
  - Metastases to bone [Fatal]
  - Gastrointestinal carcinoma [Fatal]

NARRATIVE: CASE EVENT DATE: 201701
